FAERS Safety Report 6207989-9 (Version None)
Quarter: 2009Q2

REPORT INFORMATION
  Report Type: 
  Country: None (occurrence: None)
  Receive Date: 20090529
  Receipt Date: 20090220
  Transmission Date: 20091009
  Serious: No
  Sender: FDA-Public Use
  Company Number: A0769782A

PATIENT
  Age: 39 Year
  Sex: Female

DRUGS (2)
  1. VENTOLIN [Suspect]
     Route: 055
     Dates: start: 20090219, end: 20090219
  2. BIRTH CONTROL PILL [Concomitant]

REACTIONS (2)
  - ACCIDENTAL EXPOSURE [None]
  - DIZZINESS [None]
